FAERS Safety Report 7036248-X (Version None)
Quarter: 2010Q4

REPORT INFORMATION
  Report Type: 
  Country: None (occurrence: None)
  Receive Date: 20101008
  Receipt Date: 20100930
  Transmission Date: 20110411
  Serious: Yes (Other)
  Sender: FDA-Public Use
  Company Number: US-VALEANT-2010VX001427

PATIENT
  Age: 68 Year
  Sex: Female

DRUGS (9)
  1. TIMOPTIC [Suspect]
     Indication: GLAUCOMA
     Route: 047
     Dates: start: 20090317, end: 20090527
  2. DORZOLAMIDE HYDROCHLORIDE [Suspect]
     Indication: GLAUCOMA
     Route: 047
     Dates: start: 20090527, end: 20090702
  3. DORZOLAMIDE HYDROCHLORIDE [Suspect]
     Route: 047
     Dates: start: 20090703, end: 20091001
  4. COSOPT [Concomitant]
     Route: 065
     Dates: start: 20090527, end: 20091001
  5. ACTONEL [Concomitant]
     Route: 065
  6. CALTRATE [Concomitant]
     Route: 065
  7. TRAVATAN [Concomitant]
     Route: 065
  8. VITAMINS [Concomitant]
     Route: 065
  9. DORZOLAMIDE HYDROCHLORIDE [Concomitant]
     Route: 065

REACTIONS (7)
  - DIZZINESS [None]
  - DRUG HYPERSENSITIVITY [None]
  - MACULAR DEGENERATION [None]
  - NAUSEA [None]
  - RETINAL ANEURYSM [None]
  - RETINAL HAEMORRHAGE [None]
  - VITREOUS DETACHMENT [None]
